FAERS Safety Report 8385409 (Version 4)
Quarter: 2020Q3

REPORT INFORMATION
  Report Type: Report from Study
  Country: US (occurrence: US)
  Receive Date: 20120202
  Receipt Date: 20130116
  Transmission Date: 20201104
  Serious: Yes (Life-Threatening, Other)
  Sender: FDA-Public Use
  Company Number: US-JNJFOC-20120113707

PATIENT
  Age: 43 Year
  Sex: Female
  Weight: 86 kg

DRUGS (15)
  1. CISAPRIDE [Suspect]
     Active Substance: CISAPRIDE
     Indication: GASTROINTESTINAL MOTILITY DISORDER
     Dosage: TOTAL DOSE:30 MG/DAY
     Route: 048
     Dates: start: 20120302
  2. NEXIUM [Concomitant]
     Active Substance: ESOMEPRAZOLE MAGNESIUM
     Indication: DYSPEPSIA
     Route: 048
     Dates: start: 20071205
  3. EVOXAC [Concomitant]
     Active Substance: CEVIMELINE HYDROCHLORIDE
     Indication: DRY MOUTH
     Route: 048
  4. RESTASIS [Concomitant]
     Active Substance: CYCLOSPORINE
     Indication: DRY EYE
     Route: 047
  5. TRAMADOL. [Concomitant]
     Active Substance: TRAMADOL
     Indication: PAIN
     Route: 048
     Dates: start: 20081006
  6. CISAPRIDE [Suspect]
     Active Substance: CISAPRIDE
     Indication: GASTROINTESTINAL MOTILITY DISORDER
     Route: 048
     Dates: start: 20070606, end: 20120130
  7. CISAPRIDE [Suspect]
     Active Substance: CISAPRIDE
     Indication: GASTROOESOPHAGEAL REFLUX DISEASE
     Route: 048
     Dates: start: 20070606, end: 20120130
  8. CYMBALTA [Concomitant]
     Active Substance: DULOXETINE HYDROCHLORIDE
     Indication: FIBROMYALGIA
     Route: 065
     Dates: start: 20090206
  9. CARISOPRODOL. [Concomitant]
     Active Substance: CARISOPRODOL
     Indication: MUSCLE SPASMS
     Route: 048
     Dates: start: 20070610
  10. ALBUTEROL. [Concomitant]
     Active Substance: ALBUTEROL
     Indication: BRONCHITIS
     Route: 055
     Dates: start: 20100106
  11. CISAPRIDE [Suspect]
     Active Substance: CISAPRIDE
     Indication: GASTROOESOPHAGEAL REFLUX DISEASE
     Dosage: TOTAL DOSE:30 MG/DAY
     Route: 048
     Dates: start: 20120302
  12. ZANTAC [Concomitant]
     Active Substance: RANITIDINE HYDROCHLORIDE
     Indication: GASTROOESOPHAGEAL REFLUX DISEASE
     Dosage: PRESCRIPTION REQUIRED AS NECESSARY (PRN)
     Route: 048
  13. MULTIVITAMINS [Concomitant]
     Active Substance: VITAMINS
     Indication: ROUTINE HEALTH MAINTENANCE
     Route: 048
  14. TEMAZEPAM. [Concomitant]
     Active Substance: TEMAZEPAM
     Indication: INSOMNIA
     Route: 048
  15. PLAQUENIL [Concomitant]
     Active Substance: HYDROXYCHLOROQUINE SULFATE
     Indication: SJOGREN^S SYNDROME
     Route: 048
     Dates: start: 20081006

REACTIONS (1)
  - Electrocardiogram QT prolonged [Recovered/Resolved]

NARRATIVE: CASE EVENT DATE: 20120130
